FAERS Safety Report 4502656-1 (Version None)
Quarter: 2004Q4

REPORT INFORMATION
  Report Type: 
  Country: None (occurrence: None)
  Receive Date: 20041110
  Receipt Date: 20041025
  Transmission Date: 20050328
  Serious: No
  Sender: FDA-Public Use
  Company Number: 9172

PATIENT
  Sex: Female

DRUGS (3)
  1. METHOTREXATE [Suspect]
  2. PREDNISOLONE [Concomitant]
  3. NABUMETONE [Concomitant]

REACTIONS (2)
  - ABORTION SPONTANEOUS [None]
  - TRANSMISSION OF DRUG VIA SEMEN [None]
